FAERS Safety Report 6228346-5 (Version None)
Quarter: 2009Q2

REPORT INFORMATION
  Report Type: 
  Country: None (occurrence: None)
  Receive Date: 20090612
  Receipt Date: 20090528
  Transmission Date: 20091009
  Serious: Yes (Disabling, Other)
  Sender: FDA-Public Use
  Company Number: US-PFIZER INC-2008029706

PATIENT
  Sex: Female

DRUGS (3)
  1. DOSTINEX [Suspect]
     Indication: PITUITARY TUMOUR
     Dosage: UNK
     Dates: end: 20070101
  2. DOSTINEX [Suspect]
     Dosage: UNK
     Dates: start: 20090501, end: 20090501
  3. BROMOCRIPTINE [Suspect]

REACTIONS (5)
  - BLINDNESS [None]
  - BRAIN NEOPLASM [None]
  - DISABILITY [None]
  - MIGRAINE [None]
  - PITUITARY TUMOUR [None]
